FAERS Safety Report 7987009-6 (Version None)
Quarter: 2011Q4

REPORT INFORMATION
  Report Type: 
  Country: None (occurrence: None)
  Receive Date: 20111216
  Receipt Date: 20110427
  Transmission Date: 20120403
  Serious: No
  Sender: FDA-Public Use
  Company Number: US-BRISTOL-MYERS SQUIBB COMPANY-15600323

PATIENT
  Age: 68 Year
  Sex: Female
  Weight: 79 kg

DRUGS (4)
  1. PAXIL [Concomitant]
     Indication: DEPRESSION
  2. ALPRAZOLAM [Concomitant]
  3. ABILIFY [Suspect]
     Indication: DEPRESSION
     Dosage: DIURATION: LESS THAN A MONTH
     Route: 048
     Dates: start: 20091111
  4. NORTRIPTYLINE HCL [Suspect]
     Dosage: DOSE INCREASED THEN DECREASED ON UMK DATE

REACTIONS (3)
  - OCULAR HYPERAEMIA [None]
  - TREMOR [None]
  - RESTLESSNESS [None]
